FAERS Safety Report 17450608 (Version 2)
Quarter: 2020Q1

REPORT INFORMATION
  Report Type: Report from Study
  Country: US (occurrence: US)
  Receive Date: 20200224
  Receipt Date: 20200327
  Transmission Date: 20200409
  Serious: Yes (Other)
  Sender: FDA-Public Use
  Company Number: NVSC2020US045656

PATIENT
  Sex: Female

DRUGS (2)
  1. GLEEVEC [Suspect]
     Active Substance: IMATINIB MESYLATE
     Indication: GASTROINTESTINAL STROMAL TUMOUR
     Dosage: UNK
     Route: 065
  2. RIFAMPIN. [Interacting]
     Active Substance: RIFAMPIN
     Indication: PRODUCT USED FOR UNKNOWN INDICATION
     Dosage: 300 MG
     Route: 065

REACTIONS (6)
  - Pneumonia [Recovered/Resolved]
  - Malignant neoplasm progression [Not Recovered/Not Resolved]
  - Drug ineffective [Unknown]
  - Drug interaction [Not Recovered/Not Resolved]
  - Gastrointestinal stromal tumour [Not Recovered/Not Resolved]
  - Lung disorder [Not Recovered/Not Resolved]
